FAERS Safety Report 13013154 (Version 1)
Quarter: 2016Q4

REPORT INFORMATION
  Report Type: Spontaneous
  Country: US (occurrence: US)
  Receive Date: 20161208
  Receipt Date: 20161208
  Transmission Date: 20170207
  Serious: Yes (Hospitalization)
  Sender: FDA-Public Use
  Company Number: None

PATIENT
  Age: 48 Year
  Sex: Male
  Weight: 159.6 kg

DRUGS (1)
  1. CISPLATIN. [Suspect]
     Active Substance: CISPLATIN
     Dates: end: 20161129

REACTIONS (6)
  - Mania [None]
  - Mucosal inflammation [None]
  - Salivary hypersecretion [None]
  - Agitation [None]
  - Abnormal behaviour [None]
  - Eye discharge [None]

NARRATIVE: CASE EVENT DATE: 20161107
